FAERS Safety Report 15271989 (Version 1)
Quarter: 2018Q3

REPORT INFORMATION
  Report Type: Spontaneous
  Country: US (occurrence: US)
  Receive Date: 20180813
  Receipt Date: 20180813
  Transmission Date: 20181010
  Serious: Yes (Life-Threatening, Hospitalization)
  Sender: FDA-Public Use
  Company Number: US-TEVA-2018-US-943438

PATIENT
  Age: 14 Year
  Sex: Male

DRUGS (1)
  1. MINOCYCLINE [Suspect]
     Active Substance: MINOCYCLINE\MINOCYCLINE HYDROCHLORIDE
     Indication: ACNE
     Route: 065

REACTIONS (6)
  - Stevens-Johnson syndrome [Recovering/Resolving]
  - Symblepharon [Recovering/Resolving]
  - Corneal disorder [Recovering/Resolving]
  - Toxic epidermal necrolysis [Recovering/Resolving]
  - Sinus tachycardia [Recovering/Resolving]
  - Delirium [Recovering/Resolving]
